FAERS Safety Report 8149581-5 (Version None)
Quarter: 2012Q1

REPORT INFORMATION
  Report Type: 
  Country: None (occurrence: None)
  Receive Date: 20120218
  Receipt Date: 20111221
  Transmission Date: 20120608
  Serious: No
  Sender: FDA-Public Use
  Company Number: US-ALLERGAN-1111360US

PATIENT
  Age: 55 Year
  Sex: Female

DRUGS (4)
  1. CATAFLAM [Concomitant]
     Indication: PRODUCT USED FOR UNKNOWN INDICATION
  2. PAXIL [Concomitant]
     Indication: PRODUCT USED FOR UNKNOWN INDICATION
  3. BOTULINUM TOXIN TYPE A [Suspect]
     Indication: TEMPOROMANDIBULAR JOINT SYNDROME
     Dosage: 60 UNITS, SINGLE
     Route: 030
     Dates: start: 20110701, end: 20110701
  4. NEURONTIN [Concomitant]
     Indication: PRODUCT USED FOR UNKNOWN INDICATION

REACTIONS (5)
  - MUSCLE SPASMS [None]
  - PARAESTHESIA [None]
  - MUSCULAR WEAKNESS [None]
  - BACK PAIN [None]
  - GAIT DISTURBANCE [None]
